FAERS Safety Report 4658469-3 (Version None)
Quarter: 2005Q2

REPORT INFORMATION
  Report Type: 
  Country: None (occurrence: None)
  Receive Date: 20050511
  Receipt Date: 20050131
  Transmission Date: 20051028
  Serious: Yes (Hospitalization)
  Sender: FDA-Public Use
  Company Number: FR-GLAXOSMITHKLINE-B0369124A

PATIENT
  Age: 54 Year
  Sex: Female
  Weight: 54 kg

DRUGS (4)
  1. ZYBAN [Suspect]
     Indication: SMOKING CESSATION THERAPY
     Dosage: 300MG PER DAY
     Route: 048
     Dates: start: 20041206, end: 20041214
  2. VACCINE [Suspect]
     Indication: SMOKING CESSATION THERAPY
     Dosage: 2UNIT SINGLE DOSE
     Route: 058
     Dates: start: 20041123, end: 20041123
  3. LESCOL [Concomitant]
     Indication: LIPID METABOLISM DISORDER
     Dosage: 1UNIT PER DAY
     Route: 048
  4. DHEA [Concomitant]

REACTIONS (6)
  - BRADYCARDIA [None]
  - DYSPNOEA EXERTIONAL [None]
  - HEPATOCELLULAR DAMAGE [None]
  - PITTING OEDEMA [None]
  - TRANSAMINASES INCREASED [None]
  - WEIGHT INCREASED [None]
